FAERS Safety Report 8401224-9 (Version None)
Quarter: 2012Q2

REPORT INFORMATION
  Report Type: 
  Country: None (occurrence: None)
  Receive Date: 20120601
  Receipt Date: 20120528
  Transmission Date: 20120825
  Serious: Yes (Death, Other)
  Sender: FDA-Public Use
  Company Number: PHHY2012BR045901

PATIENT
  Sex: Male
  Weight: 54 kg

DRUGS (12)
  1. METOCLOPRAMIDE HYDROCHLORIDE [Concomitant]
     Indication: NAUSEA
     Dosage: UNK
  2. SUPRADYN                                /ARG/ [Concomitant]
     Indication: VITAMIN SUPPLEMENTATION
  3. IMOSEC [Concomitant]
     Indication: NAUSEA
     Dosage: UNK
  4. OMEPRAZOLE [Concomitant]
     Dosage: 1 IN THE MORNING AND 1 AT NIGHT
     Route: 048
     Dates: start: 20120201
  5. NORIPURUM [Concomitant]
     Indication: VITAMIN SUPPLEMENTATION
     Dosage: UNK
     Dates: start: 20120201
  6. FLUTICASONE PROPIONATE/SALMETEROL [Concomitant]
     Indication: EMPHYSEMA
     Dosage: 1 INHALATION PER DAY
  7. ALDACTONE [Concomitant]
     Indication: FLUID RETENTION
     Dosage: 2 TABLETS IN THE MORNING
     Route: 048
     Dates: start: 20120201
  8. FELDENE [Concomitant]
     Indication: PAIN
     Dosage: UNK
     Route: 060
     Dates: start: 20120201
  9. FORMOTEROL FUMARATE [Suspect]
     Indication: EMPHYSEMA
     Dosage: 1 INHALATION OF EACH TREATMENT IN THE MORNING AND 1 INHALATION OF EACH TREATMENT AT NIGHT
  10. FORMOTEROL FUMARATE [Suspect]
     Dosage: 4 OR 5 INHALATIONS A DAY
     Dates: end: 20120525
  11. DAFLON 500 [Concomitant]
     Indication: CARDIOVASCULAR DISORDER
     Dosage: UNK
  12. KALYAMON B12 [Concomitant]
     Indication: VITAMIN SUPPLEMENTATION
     Dosage: UNK
     Dates: start: 20120201

REACTIONS (9)
  - OEDEMA PERIPHERAL [None]
  - GASTRIC CANCER [None]
  - FLUID RETENTION [None]
  - NAUSEA [None]
  - PULMONARY SEPSIS [None]
  - DYSPNOEA [None]
  - FEBRILE NEUTROPENIA [None]
  - METASTASIS [None]
  - GAIT DISTURBANCE [None]
